FAERS Safety Report 5857316-1 (Version None)
Quarter: 2008Q3

REPORT INFORMATION
  Report Type: 
  Country: None (occurrence: None)
  Receive Date: 20080826
  Receipt Date: 20080821
  Transmission Date: 20090109
  Serious: Yes (Other)
  Sender: FDA-Public Use
  Company Number: US-SP-2008-02680

PATIENT
  Age: 43 Year
  Sex: Female

DRUGS (1)
  1. TUBERSOL [Suspect]
     Indication: TUBERCULIN TEST
     Route: 065

REACTIONS (4)
  - DYSPNOEA [None]
  - NAUSEA [None]
  - RASH [None]
  - SYNCOPE [None]
